FAERS Safety Report 22283766 (Version 2)
Quarter: 2023Q2

REPORT INFORMATION
  Report Type: Other
  Country: US (occurrence: None)
  Receive Date: 20230504
  Receipt Date: 20230518
  Transmission Date: 20230721
  Serious: Yes (Hospitalization)
  Sender: FDA-Public Use
  Company Number: US-ROCHE-3340356

PATIENT
  Age: 51 Year
  Sex: Male

DRUGS (1)
  1. OCREVUS [Suspect]
     Active Substance: OCRELIZUMAB
     Indication: Relapsing multiple sclerosis
     Dosage: DATE OF TREATMENT FOR 1ST HALF INFUSION : 2021-07-19, DATE OF TREATMENT FOR 2ND HALF INFUSION : 2021
     Route: 042

REACTIONS (6)
  - Fall [Unknown]
  - Rib fracture [Unknown]
  - Pneumonia [Unknown]
  - Hypervolaemia [Unknown]
  - Malaise [Not Recovered/Not Resolved]
  - Off label use [Unknown]

NARRATIVE: CASE EVENT DATE: 20230101
